FAERS Safety Report 9328038 (Version 3)
Quarter: 2019Q4

REPORT INFORMATION
  Report Type: Spontaneous
  Country: US (occurrence: US)
  Receive Date: 20130604
  Receipt Date: 20191002
  Transmission Date: 20200122
  Serious: Yes (Other)
  Sender: FDA-Public Use
  Company Number: US-SANOFI-AVENTIS-2012SA030827

PATIENT
  Age: 70 Year
  Sex: Female

DRUGS (2)
  1. LANTUS [Suspect]
     Active Substance: INSULIN GLARGINE
     Dosage: UNKNOWN
     Route: 058
  2. HUMALOG [Concomitant]
     Active Substance: INSULIN LISPRO

REACTIONS (14)
  - Feeling abnormal [Unknown]
  - Pain [Unknown]
  - Blood glucose increased [Unknown]
  - Hypersensitivity [Unknown]
  - Dyspnoea [Unknown]
  - Pain in extremity [Unknown]
  - Headache [Recovered/Resolved]
  - Cataract [Unknown]
  - Coeliac disease [Unknown]
  - Nerve injury [Unknown]
  - Abdominal pain upper [Unknown]
  - Quality of life decreased [Unknown]
  - Abdominal discomfort [Unknown]
  - Unevaluable event [Unknown]
